FAERS Safety Report 6103429-9 (Version None)
Quarter: 2009Q1

REPORT INFORMATION
  Report Type: 
  Country: None (occurrence: None)
  Receive Date: 20090305
  Receipt Date: 20090225
  Transmission Date: 20090719
  Serious: Yes (Other)
  Sender: FDA-Public Use
  Company Number: PHHY2009JP07075

PATIENT
  Age: 45 Year
  Sex: Male

DRUGS (1)
  1. SANDOSTATIN [Suspect]

REACTIONS (2)
  - ABDOMINAL DISTENSION [None]
  - INTESTINAL OBSTRUCTION [None]
